FAERS Safety Report 4369849-8 (Version None)
Quarter: 2004Q2

REPORT INFORMATION
  Report Type: 
  Country: None (occurrence: None)
  Receive Date: 20040527
  Receipt Date: 20040514
  Transmission Date: 20050107
  Serious: Yes (Death, Hospitalization)
  Sender: FDA-Public Use
  Company Number: 2004033011

PATIENT
  Age: 78 Year
  Sex: Female

DRUGS (4)
  1. SERTRALINE HCL [Suspect]
     Indication: ILL-DEFINED DISORDER
     Dosage: 150 MG (150 MG, 1 IN 1 D), ORAL
     Route: 048
     Dates: start: 19980701
  2. LITHIUM CARBONATE [Concomitant]
  3. DIAZEPAM [Concomitant]
  4. TEMAZEPAM [Concomitant]

REACTIONS (4)
  - AGITATION [None]
  - DRUG INEFFECTIVE [None]
  - DRUG TOXICITY [None]
  - INADEQUATE DIET [None]
